FAERS Safety Report 21284858 (Version 2)
Quarter: 2022Q4

REPORT INFORMATION
  Report Type: Spontaneous
  Country: US (occurrence: US)
  Receive Date: 20220902
  Receipt Date: 20221006
  Transmission Date: 20230113
  Serious: Yes (Hospitalization)
  Sender: FDA-Public Use
  Company Number: US-JNJFOC-20220856878

PATIENT
  Age: 67 Year
  Sex: Female

DRUGS (4)
  1. UPTRAVI [Suspect]
     Active Substance: SELEXIPAG
     Indication: Pulmonary hypertension
     Route: 048
     Dates: start: 20220805
  2. UPTRAVI [Suspect]
     Active Substance: SELEXIPAG
     Route: 048
     Dates: start: 202208
  3. UPTRAVI [Suspect]
     Active Substance: SELEXIPAG
     Dosage: TAKING IT LIKE A Z PAK
     Route: 048
     Dates: start: 20220801, end: 20220804
  4. AMBRISENTAN [Suspect]
     Active Substance: AMBRISENTAN
     Indication: Pulmonary hypertension
     Route: 065
     Dates: start: 202205, end: 2022

REACTIONS (7)
  - Fluid retention [Unknown]
  - Pain in jaw [Unknown]
  - Headache [Unknown]
  - Incorrect dose administered [Recovered/Resolved]
  - Mental disorder [Unknown]
  - Paraesthesia [Unknown]
  - Pain in extremity [Unknown]

NARRATIVE: CASE EVENT DATE: 20220701
